FAERS Safety Report 16057212 (Version 7)
Quarter: 2020Q2

REPORT INFORMATION
  Report Type: Spontaneous
  Country: US (occurrence: US)
  Receive Date: 20190311
  Receipt Date: 20200615
  Transmission Date: 20200713
  Serious: No
  Sender: FDA-Public Use
  Company Number: US-PFIZER INC-2019101252

PATIENT
  Age: 85 Year
  Sex: Female
  Weight: 67 kg

DRUGS (7)
  1. IBRANCE [Suspect]
     Active Substance: PALBOCICLIB
     Dosage: 100 MG, CYCLIC (D1-21 Q (EVERY) 28 DAYS)
     Route: 048
     Dates: start: 2019, end: 2019
  2. IBRANCE [Suspect]
     Active Substance: PALBOCICLIB
     Dosage: UNK
  3. ANASTROZOLE. [Concomitant]
     Active Substance: ANASTROZOLE
     Dosage: 1 MG, DAILY
     Dates: start: 201903
  4. IBRANCE [Suspect]
     Active Substance: PALBOCICLIB
     Dosage: 125 MG, CYCLIC (D1-21 EVERY 28 DAYS)
     Route: 048
     Dates: start: 20190212, end: 2019
  5. IBRANCE [Suspect]
     Active Substance: PALBOCICLIB
     Dosage: 75 MG, CYCLIC [ONCE A DAY FOR 21 DAYS]
     Dates: start: 201903
  6. IBRANCE [Suspect]
     Active Substance: PALBOCICLIB
     Dosage: 75 MG, CYCLIC [21 DAYS THEN OFF FOR TWO WEEKS]
  7. IBRANCE [Suspect]
     Active Substance: PALBOCICLIB
     Indication: BREAST CANCER METASTATIC
     Dosage: 75 MG, CYCLIC (75MG DAILY FOR 21 DAYS)
     Route: 048
     Dates: start: 201901, end: 2019

REACTIONS (8)
  - Blood count abnormal [Not Recovered/Not Resolved]
  - Neoplasm progression [Not Recovered/Not Resolved]
  - White blood cell count decreased [Not Recovered/Not Resolved]
  - Constipation [Recovered/Resolved]
  - Stomatitis [Recovered/Resolved]
  - Fatigue [Not Recovered/Not Resolved]
  - Insomnia [Recovered/Resolved]
  - Platelet count decreased [Not Recovered/Not Resolved]

NARRATIVE: CASE EVENT DATE: 2019
